FAERS Safety Report 8218411 (Version 4)
Quarter: 2012Q4

REPORT INFORMATION
  Report Type: 
  Country: CN (occurrence: CN)
  Receive Date: 20111101
  Receipt Date: 20121105
  Transmission Date: 20130627
  Serious: Yes (Death, Other)
  Sender: FDA-Public Use
  Company Number: CN-BAYER-2011-105542

PATIENT
  Age: 40 Year
  Sex: Female
  Weight: 50 kg

DRUGS (1)
  1. ULTRAVIST 370 [Suspect]
     Indication: COMPUTERISED TOMOGRAM ABDOMEN
     Dosage: 80 ml, ONCE
     Dates: start: 20111031, end: 20111031

REACTIONS (10)
  - Hypokalaemia [None]
  - Dizziness [Unknown]
  - Nausea [Unknown]
  - Anaphylactic shock [Fatal]
  - Fatigue [Unknown]
  - Vomiting [Unknown]
  - Palpitations [Unknown]
  - Pulse pressure decreased [None]
  - Dyspnoea [None]
  - Ventricular fibrillation [None]
